FAERS Safety Report 7571880-6 (Version None)
Quarter: 2011Q2

REPORT INFORMATION
  Report Type: 
  Country: None (occurrence: None)
  Receive Date: 20110624
  Receipt Date: 20100622
  Transmission Date: 20111010
  Serious: No
  Sender: FDA-Public Use
  Company Number: A0866552A

PATIENT
  Age: 54 Year
  Sex: Female

DRUGS (2)
  1. VERAMYST [Suspect]
     Indication: SINUS CONGESTION
     Dosage: 2SPR PER DAY
     Route: 045
     Dates: start: 20100616, end: 20100620
  2. NO CONCURRENT MEDICATION [Concomitant]

REACTIONS (1)
  - ABDOMINAL PAIN UPPER [None]
